FAERS Safety Report 23243714 (Version 1)
Quarter: 2023Q4

REPORT INFORMATION
  Report Type: Report from Study
  Country: NL (occurrence: NL)
  Receive Date: 20231130
  Receipt Date: 20231130
  Transmission Date: 20240110
  Serious: Yes (Hospitalization, Other)
  Sender: FDA-Public Use
  Company Number: NL-ABBVIE-5517628

PATIENT
  Sex: Male

DRUGS (5)
  1. CARBIDOPA\LEVODOPA [Suspect]
     Active Substance: CARBIDOPA\LEVODOPA
     Indication: Parkinson^s disease
     Route: 050
     Dates: start: 20190325
  2. CARBIDOPA\LEVODOPA [Suspect]
     Active Substance: CARBIDOPA\LEVODOPA
     Dosage: MD: 6.1, CD: 3.1, ED: 1.5, REMAINS AT 16 HOURS
     Route: 050
     Dates: start: 20230425, end: 20230608
  3. CARBIDOPA\LEVODOPA [Suspect]
     Active Substance: CARBIDOPA\LEVODOPA
     Dosage: MD: 6.1, CD: 3.1, ED: 1.5, REMAINS AT 16 HOURS
     Route: 050
     Dates: start: 20230608, end: 20231013
  4. CARBIDOPA\LEVODOPA [Suspect]
     Active Substance: CARBIDOPA\LEVODOPA
     Dosage: MD: 6.1, CD: 3.1, ED: 1.5, REMAINS AT 16 HOURS
     Route: 050
     Dates: start: 20231013
  5. MAGNESIUM [Concomitant]
     Active Substance: MAGNESIUM
     Indication: Bowel movement irregularity

REACTIONS (3)
  - Spinal stenosis [Recovered/Resolved]
  - Dyskinesia [Not Recovered/Not Resolved]
  - Intentional product misuse [Unknown]
